FAERS Safety Report 4987375-X (Version None)
Quarter: 2006Q2

REPORT INFORMATION
  Report Type: 
  Country: None (occurrence: None)
  Receive Date: 20060501
  Receipt Date: 20050112
  Transmission Date: 20061013
  Serious: Yes (Hospitalization)
  Sender: FDA-Public Use
  Company Number: US-MERCK-0501USA02343

PATIENT
  Age: 59 Year
  Sex: Female
  Weight: 84 kg

DRUGS (7)
  1. VIOXX [Suspect]
     Indication: ARTHRALGIA
     Route: 048
     Dates: start: 20010901, end: 20040501
  2. VIOXX [Suspect]
     Route: 048
     Dates: start: 20010901, end: 20040501
  3. DARVOCET [Concomitant]
     Route: 048
     Dates: start: 20011001
  4. COLACE [Concomitant]
     Route: 048
     Dates: start: 20011001
  5. ACCUPRIL [Concomitant]
     Indication: HYPERTENSION
     Route: 048
     Dates: end: 20011004
  6. ACCUPRIL [Concomitant]
     Route: 048
     Dates: start: 20011004
  7. PLENDIL [Concomitant]
     Route: 065

REACTIONS (12)
  - ANEURYSM [None]
  - ASTHMA [None]
  - DEEP VEIN THROMBOSIS [None]
  - GASTROOESOPHAGEAL REFLUX DISEASE [None]
  - GOITRE [None]
  - LUNG NEOPLASM [None]
  - OSTEOARTHRITIS [None]
  - OSTEOPENIA [None]
  - PULMONARY EMBOLISM [None]
  - THROMBOPHLEBITIS SUPERFICIAL [None]
  - THROMBOSIS [None]
  - UTERINE PROLAPSE [None]
